FAERS Safety Report 5358222-1 (Version None)
Quarter: 2007Q2

REPORT INFORMATION
  Report Type: 
  Country: None (occurrence: None)
  Receive Date: 20070530
  Receipt Date: 20061018
  Transmission Date: 20071010
  Serious: Yes (Hospitalization)
  Sender: FDA-Public Use
  Company Number: US200603004537

PATIENT
  Age: 44 Year
  Sex: Female
  Weight: 72.6 kg

DRUGS (2)
  1. ZYPREXA [Suspect]
     Dosage: 20 MG
     Dates: start: 20030708, end: 20031224
  2. BUPROPION HCL [Concomitant]

REACTIONS (2)
  - BILIARY TRACT DISORDER [None]
  - PANCREATITIS [None]
